FAERS Safety Report 7083593-8 (Version None)
Quarter: 2010Q4

REPORT INFORMATION
  Report Type: 
  Country: None (occurrence: None)
  Receive Date: 20101104
  Receipt Date: 20101101
  Transmission Date: 20110411
  Serious: Yes (Death)
  Sender: FDA-Public Use
  Company Number: RU-B.I. PHARMACEUTICALS,INC./RIDGEFIELD-2010-AP-00572AP

PATIENT
  Sex: Male
  Weight: 76 kg

DRUGS (4)
  1. PRADAXA [Suspect]
     Indication: THROMBOSIS PROPHYLAXIS
     Dosage: 110 MG
     Route: 048
     Dates: start: 20100922, end: 20100922
  2. PRADAXA [Suspect]
     Dosage: 220 MG
     Route: 048
     Dates: start: 20100923, end: 20100929
  3. AZARAN (CEFTRIAXON) [Concomitant]
     Indication: ANTIBIOTIC PROPHYLAXIS
     Dosage: 1 G
     Dates: start: 20100922, end: 20100929
  4. FERRUM-LEK (ION CONTAINING DRUG) [Concomitant]
     Indication: ANAEMIA
     Dosage: DAILY DOSE: TBD
     Dates: start: 20100922, end: 20100929

REACTIONS (1)
  - MYOCARDIAL INFARCTION [None]
